FAERS Safety Report 13457049 (Version 3)
Quarter: 2017Q2

REPORT INFORMATION
  Report Type: Spontaneous
  Country: US (occurrence: US)
  Receive Date: 20170419
  Receipt Date: 20170605
  Transmission Date: 20170830
  Serious: No
  Sender: FDA-Public Use
  Company Number: US-TEVA-758317ACC

PATIENT
  Age: 59 Year
  Sex: Female

DRUGS (19)
  1. MECLIZINE 12.5 MG TAB [Concomitant]
  2. METFORMIN 25 MG [Concomitant]
  3. ASPIRIN. [Concomitant]
     Active Substance: ASPIRIN
  4. VESICARE [Concomitant]
     Active Substance: SOLIFENACIN SUCCINATE
  5. ZOLOFT [Concomitant]
     Active Substance: SERTRALINE HYDROCHLORIDE
  6. TIZANIDINE 4MG [Concomitant]
  7. COPAXONE [Suspect]
     Active Substance: GLATIRAMER ACETATE
     Indication: MULTIPLE SCLEROSIS
     Route: 058
     Dates: start: 20150721
  8. ZOLOFT [Concomitant]
     Active Substance: SERTRALINE HYDROCHLORIDE
  9. METFORMIN [Concomitant]
     Active Substance: METFORMIN HYDROCHLORIDE
  10. PERCOCET 5/325MG [Concomitant]
  11. PAXIL [Concomitant]
     Active Substance: PAROXETINE HYDROCHLORIDE
  12. VITAMIN D [Concomitant]
     Active Substance: CHOLECALCIFEROL
     Dosage: 50000
  13. TRAZODONE [Concomitant]
     Active Substance: TRAZODONE HYDROCHLORIDE
  14. LASIX 40MG [Concomitant]
  15. SEROQUEL [Concomitant]
     Active Substance: QUETIAPINE FUMARATE
  16. ASA 325MG [Concomitant]
  17. FISH OIL [Concomitant]
     Active Substance: FISH OIL
  18. COLME 100MG [Concomitant]
  19. GABAPENTIN. [Concomitant]
     Active Substance: GABAPENTIN

REACTIONS (16)
  - Gastrointestinal infection [Not Recovered/Not Resolved]
  - Dizziness [Unknown]
  - Renal function test abnormal [Not Recovered/Not Resolved]
  - Depressed mood [Unknown]
  - Cystitis [Not Recovered/Not Resolved]
  - Fatigue [Not Recovered/Not Resolved]
  - Muscle twitching [Unknown]
  - Abdominal pain upper [Not Recovered/Not Resolved]
  - Musculoskeletal stiffness [Unknown]
  - Burning sensation [Unknown]
  - Fall [Unknown]
  - Depression [Not Recovered/Not Resolved]
  - Paraesthesia [Unknown]
  - Injection site reaction [Not Recovered/Not Resolved]
  - Balance disorder [Not Recovered/Not Resolved]
  - Visual impairment [Not Recovered/Not Resolved]

NARRATIVE: CASE EVENT DATE: 201703
